FAERS Safety Report 23638179 (Version 1)
Quarter: 2024Q1

REPORT INFORMATION
  Report Type: Spontaneous
  Country: US (occurrence: None)
  Receive Date: 20240315
  Receipt Date: 20240315
  Transmission Date: 20240410
  Serious: Yes (Life-Threatening, Hospitalization, Disabling)
  Sender: FDA-Public Use
  Company Number: None

PATIENT
  Age: 76 Year
  Sex: Female

DRUGS (1)
  1. LISINOPRIL [Suspect]
     Active Substance: LISINOPRIL

REACTIONS (13)
  - Angioedema [None]
  - Respiratory arrest [None]
  - Blood glucose increased [None]
  - Medical induction of coma [None]
  - Emotional distress [None]
  - Paranoia [None]
  - Speech disorder [None]
  - Mobility decreased [None]
  - Pain [None]
  - Muscular weakness [None]
  - Depressed mood [None]
  - Feeling of despair [None]
  - Gait disturbance [None]

NARRATIVE: CASE EVENT DATE: 20221024
